FAERS Safety Report 21203594 (Version 5)
Quarter: 2022Q4

REPORT INFORMATION
  Report Type: Report from Study
  Country: US (occurrence: US)
  Receive Date: 20220811
  Receipt Date: 20221222
  Transmission Date: 20230113
  Serious: Yes (Life-Threatening, Hospitalization, Other)
  Sender: FDA-Public Use
  Company Number: US-NOVARTISPH-NVSC2022US067523

PATIENT
  Age: 11 Year
  Sex: Male
  Weight: 30.2 kg

DRUGS (29)
  1. HYCAMTIN [Suspect]
     Active Substance: TOPOTECAN HYDROCHLORIDE
     Indication: Neoplasm malignant
     Dosage: 0.92 MG, QD (DAY 3-7)
     Route: 042
     Dates: start: 20220302
  2. HYCAMTIN [Suspect]
     Active Substance: TOPOTECAN HYDROCHLORIDE
     Dosage: 0.75 MG/M2, QD (DAYS 3-7 MAXIMUM 5 DAYS EVERY 21 DAYS)
     Route: 042
     Dates: start: 20220302
  3. HYCAMTIN [Suspect]
     Active Substance: TOPOTECAN HYDROCHLORIDE
     Dosage: 0.56 MG, QD (ON DAYS 1-5 OF EVERY 21 DAYS)
     Route: 042
     Dates: start: 20220302
  4. CYCLOPHOSPHAMIDE [Suspect]
     Active Substance: CYCLOPHOSPHAMIDE
     Indication: Neoplasm malignant
     Dosage: 310 MG, QD (DAY 3-7)
     Route: 042
     Dates: start: 20220302
  5. CYCLOPHOSPHAMIDE [Suspect]
     Active Substance: CYCLOPHOSPHAMIDE
     Dosage: 250 MG/M2, QD (DAYS 3-7, MAXIMUM 5 DAYS EVERY 21 DAYS)
     Route: 042
     Dates: start: 20220302
  6. CYCLOPHOSPHAMIDE [Suspect]
     Active Substance: CYCLOPHOSPHAMIDE
     Dosage: 187.5 MG, QD (ON DAYS 1-5 OF EVERY 21 DAYS)
     Route: 042
     Dates: start: 20220302
  7. VENETOCLAX [Suspect]
     Active Substance: VENETOCLAX
     Indication: Neoplasm malignant
     Dosage: 500 MG, QD (DAY 1-10), INTERMITTENT DOSING (ORAL SUSPENSION)
     Route: 048
     Dates: start: 20220228
  8. VENETOCLAX [Suspect]
     Active Substance: VENETOCLAX
     Dosage: 250 MG, QD
     Route: 048
     Dates: start: 20220228
  9. VENETOCLAX [Suspect]
     Active Substance: VENETOCLAX
     Dosage: UNK
     Route: 048
     Dates: start: 20220228, end: 20220228
  10. VENETOCLAX [Suspect]
     Active Substance: VENETOCLAX
     Dosage: 500 MG, QD
     Route: 048
     Dates: start: 20220301
  11. VENETOCLAX [Suspect]
     Active Substance: VENETOCLAX
     Dosage: 500 MG, QD (DOSING LIQUID: 100% APPLE JUICE. ON DAYS 1-10 OF 21 DAY CYCLE, NASOGASTRIC)
     Route: 065
     Dates: start: 20220228, end: 20220718
  12. VENETOCLAX [Suspect]
     Active Substance: VENETOCLAX
     Dosage: 500 MG, QD (ON DAYS 1-10 OF 21 DAY CYCLE, EVERY 1 DAYS, NASOGASTRIC)
     Route: 065
     Dates: start: 20220727
  13. ONDANSETRON [Concomitant]
     Active Substance: ONDANSETRON
     Indication: Prophylaxis of nausea and vomiting
     Dosage: 4 MG, PRN (EVERY 8 HOURS AS NEEDED)
     Route: 048
     Dates: start: 20220228
  14. ONDANSETRON [Concomitant]
     Active Substance: ONDANSETRON
     Indication: Nausea
     Dosage: 6 MG (RECTAL), ONCE/SINGLE
     Route: 054
     Dates: start: 20220301, end: 20220301
  15. ONDANSETRON [Concomitant]
     Active Substance: ONDANSETRON
     Indication: Vomiting
     Dosage: 16 MG, ONCE/SINGLE
     Route: 048
     Dates: start: 20220302, end: 20220302
  16. ONDANSETRON [Concomitant]
     Active Substance: ONDANSETRON
     Dosage: 10.003 MG, ONCE/SINGLE
     Route: 042
     Dates: start: 20220303, end: 20220303
  17. ONDANSETRON [Concomitant]
     Active Substance: ONDANSETRON
     Dosage: 5.48 MG, ONCE/SINGLE
     Route: 042
     Dates: start: 20220303, end: 20220303
  18. ONDANSETRON [Concomitant]
     Active Substance: ONDANSETRON
     Dosage: 16 MG, ONCE/SINGLE
     Route: 048
     Dates: start: 20220304, end: 20220304
  19. ONDANSETRON [Concomitant]
     Active Substance: ONDANSETRON
     Dosage: 6 MG, ONCE/SINGLE
     Route: 065
     Dates: start: 20220307, end: 20220307
  20. ONDANSETRON [Concomitant]
     Active Substance: ONDANSETRON
     Dosage: 6 MG, ONCE/SINGLE
     Route: 048
     Dates: start: 20220308
  21. BACTRIM [Concomitant]
     Active Substance: SULFAMETHOXAZOLE\TRIMETHOPRIM
     Indication: Prophylaxis
     Dosage: 80 MG, BID (EVERY SATURDAY AND SUNDAY)
     Route: 048
     Dates: start: 20220305
  22. OXYCODONE [Concomitant]
     Active Substance: OXYCODONE
     Indication: Pain prophylaxis
     Dosage: 3.7 MG (1 AS REQUIRED), EVERY 6 HOURS AS NEEDED
     Route: 048
     Dates: start: 20220228
  23. PROMETHAZINE [Concomitant]
     Active Substance: PROMETHAZINE HYDROCHLORIDE
     Indication: Nausea
     Dosage: 9.38 MG (1 AS REQUIRED), EVERY 6 HOURS AS NEEDED
     Route: 048
     Dates: start: 20220228
  24. PROMETHAZINE [Concomitant]
     Active Substance: PROMETHAZINE HYDROCHLORIDE
     Indication: Vomiting
  25. PROMETHAZINE [Concomitant]
     Active Substance: PROMETHAZINE HYDROCHLORIDE
     Indication: Prophylaxis of nausea and vomiting
  26. LORAZEPAM [Concomitant]
     Active Substance: LORAZEPAM
     Indication: Prophylaxis of nausea and vomiting
     Dosage: 0.73 MG (1 AS REQUIRED), EVERY 6 HOURS AS NEEDED
     Route: 042
     Dates: start: 20220303, end: 20220303
  27. LORAZEPAM [Concomitant]
     Active Substance: LORAZEPAM
     Indication: Nausea
     Dosage: 1 NG, PRN (1 AS REQUIRED), EVERY 6 HOURS AS NEEDED
     Route: 048
     Dates: start: 20220307
  28. LORAZEPAM [Concomitant]
     Active Substance: LORAZEPAM
     Indication: Vomiting
  29. NEULASTA [Concomitant]
     Active Substance: PEGFILGRASTIM
     Indication: Bone marrow disorder
     Dosage: 6 MG, ONCE/SINGLE
     Route: 058
     Dates: start: 20220308, end: 20220308

REACTIONS (15)
  - Septic shock [Unknown]
  - Appendicitis [Unknown]
  - Platelet count decreased [Not Recovered/Not Resolved]
  - Skin ulcer [Recovered/Resolved]
  - Wound [Not Recovered/Not Resolved]
  - Febrile neutropenia [Recovered/Resolved]
  - Fatigue [Unknown]
  - Pyrexia [Unknown]
  - Sinus tachycardia [Unknown]
  - Febrile neutropenia [Not Recovered/Not Resolved]
  - Abdominal pain upper [Unknown]
  - Decreased appetite [Unknown]
  - Chest pain [Unknown]
  - Anaemia [Not Recovered/Not Resolved]
  - Flushing [Unknown]

NARRATIVE: CASE EVENT DATE: 20220310
